FAERS Safety Report 25436010 (Version 1)
Quarter: 2025Q2

REPORT INFORMATION
  Report Type: Spontaneous
  Country: US (occurrence: US)
  Receive Date: 20250613
  Receipt Date: 20250613
  Transmission Date: 20250717
  Serious: No
  Sender: BIOMARIN
  Company Number: US-BIOMARINAP-US-2025-166453

PATIENT

DRUGS (1)
  1. NAGLAZYME [Suspect]
     Active Substance: GALSULFASE
     Indication: Product used for unknown indication
     Dosage: 35 MILLIGRAM, QW
     Route: 042

REACTIONS (2)
  - Malaise [Unknown]
  - Vascular access complication [Unknown]

NARRATIVE: CASE EVENT DATE: 20250603
